FAERS Safety Report 4731530-0 (Version None)
Quarter: 2005Q3

REPORT INFORMATION
  Report Type: 
  Country: None (occurrence: None)
  Receive Date: 20050719
  Receipt Date: 20040611
  Transmission Date: 20060218
  Serious: Yes (Hospitalization)
  Sender: FDA-Public Use
  Company Number: 199766

PATIENT
  Sex: Female
  Weight: 81.6475 kg

DRUGS (4)
  1. AVONEX [Suspect]
     Indication: MULTIPLE SCLEROSIS
     Dosage: 30 UG;QW;IM
  2. AVONEX [Suspect]
     Dosage: 30 UG;QW;IM
     Dates: end: 20040610
  3. NEURONTIN [Concomitant]
  4. EFFEXOR [Concomitant]

REACTIONS (3)
  - HOT FLUSH [None]
  - HYPOAESTHESIA [None]
  - MULTIPLE SCLEROSIS RELAPSE [None]
